FAERS Safety Report 10064553 (Version 1)
Quarter: 2014Q2

REPORT INFORMATION
  Report Type: Spontaneous
  Country: US (occurrence: None)
  Receive Date: 20140407
  Receipt Date: 20140407
  Transmission Date: 20141212
  Serious: Yes (Life-Threatening, Hospitalization)
  Sender: FDA-Public Use
  Company Number: None

PATIENT
  Age: 41 Year
  Sex: Female
  Weight: 57.15 kg

DRUGS (1)
  1. MOXIFLOXACIN [Suspect]
     Indication: SINUSITIS
     Dosage: 1 PILL OF MOXIFLOXACIN ONCE DAILY TAKEN BY MOUTH
     Route: 048
     Dates: start: 20140403, end: 20140404

REACTIONS (13)
  - Syncope [None]
  - Confusional state [None]
  - Hallucination [None]
  - Convulsion [None]
  - Asthenia [None]
  - Hypoaesthesia [None]
  - Paraesthesia [None]
  - Nausea [None]
  - Diarrhoea [None]
  - Dizziness [None]
  - Vision blurred [None]
  - Palpitations [None]
  - Heart rate increased [None]
